FAERS Safety Report 23852601 (Version 1)
Quarter: 2024Q2

REPORT INFORMATION
  Report Type: Spontaneous
  Country: US (occurrence: US)
  Receive Date: 20240514
  Receipt Date: 20240514
  Transmission Date: 20240716
  Serious: No
  Sender: FDA-Public Use
  Company Number: US-FERRINGPH-2023FE02235

PATIENT
  Sex: Female

DRUGS (1)
  1. CERVIDIL [Suspect]
     Active Substance: DINOPROSTONE
     Indication: Product used for unknown indication
     Route: 065

REACTIONS (2)
  - Discomfort [Unknown]
  - Product design issue [Unknown]
